FAERS Safety Report 18186596 (Version 3)
Quarter: 2020Q4

REPORT INFORMATION
  Report Type: Other
  Country: JP (occurrence: JP)
  Receive Date: 20200824
  Receipt Date: 20201027
  Transmission Date: 20210113
  Serious: Yes (Death, Other)
  Sender: FDA-Public Use
  Company Number: JP-ROCHE-2664606

PATIENT
  Age: 63 Year
  Sex: Female
  Weight: 46 kg

DRUGS (6)
  1. ALOXI [Concomitant]
     Active Substance: PALONOSETRON HYDROCHLORIDE
     Route: 065
     Dates: start: 20160816, end: 20160920
  2. DEXART [Concomitant]
     Active Substance: DEXAMETHASONE SODIUM PHOSPHATE
     Route: 065
     Dates: start: 20160816, end: 20200920
  3. PACLITAXEL. [Concomitant]
     Active Substance: PACLITAXEL
     Indication: ADENOCARCINOMA OF THE CERVIX
     Dosage: DOSAGE IS UNCERTAIN.
     Route: 041
     Dates: start: 20160816, end: 20160920
  4. CARBOPLATIN. [Concomitant]
     Active Substance: CARBOPLATIN
     Indication: ADENOCARCINOMA OF THE CERVIX
     Dosage: DOSAGE IS UNCERTAIN.
     Route: 041
     Dates: start: 20160816, end: 20160920
  5. ZANTAC [Concomitant]
     Active Substance: RANITIDINE HYDROCHLORIDE
     Route: 065
     Dates: start: 20160816, end: 20200920
  6. AVASTIN [Suspect]
     Active Substance: BEVACIZUMAB
     Indication: ADENOCARCINOMA OF THE CERVIX
     Route: 041

REACTIONS (3)
  - Disease progression [Fatal]
  - Proteinuria [Recovered/Resolved with Sequelae]
  - Enterovesical fistula [Unknown]

NARRATIVE: CASE EVENT DATE: 20160913
